FAERS Safety Report 17203307 (Version 2)
Quarter: 2020Q3

REPORT INFORMATION
  Report Type: Spontaneous
  Country: FR (occurrence: FR)
  Receive Date: 20191226
  Receipt Date: 20200909
  Transmission Date: 20201102
  Serious: Yes (Hospitalization)
  Sender: FDA-Public Use
  Company Number: FR-JNJFOC-20191231267

PATIENT
  Age: 20 Year
  Sex: Female

DRUGS (2)
  1. STELARA [Suspect]
     Active Substance: USTEKINUMAB
     Indication: SPONDYLOARTHROPATHY
     Dosage: UNK
     Route: 058
  2. ADALIMUMAB [Suspect]
     Active Substance: ADALIMUMAB
     Indication: CROHN^S DISEASE

REACTIONS (15)
  - Proteinuria [Recovered/Resolved]
  - Large intestinal ulcer [Recovered/Resolved]
  - Necrosis [Recovered/Resolved]
  - Nervous system disorder [Recovered/Resolved]
  - Henoch-Schonlein purpura [Recovered/Resolved]
  - Duodenitis haemorrhagic [Recovered/Resolved]
  - Off label use [Unknown]
  - Rectal ulcer [Recovered/Resolved]
  - Rectal haemorrhage [Recovered/Resolved]
  - Muscle disorder [Recovered/Resolved]
  - Arthritis [Recovered/Resolved]
  - Neuropathy peripheral [Recovered/Resolved]
  - Sciatic nerve injury [Recovered/Resolved]
  - Motor dysfunction [Recovered/Resolved]
  - Product use in unapproved indication [Unknown]
